FAERS Safety Report 5876538-7 (Version None)
Quarter: 2008Q3

REPORT INFORMATION
  Report Type: 
  Country: None (occurrence: None)
  Receive Date: 20080910
  Receipt Date: 20080910
  Transmission Date: 20090109
  Serious: Yes (Hospitalization)
  Sender: FDA-Public Use
  Company Number: US-ABBOTT-08P-163-0465544-00

PATIENT
  Sex: Female
  Weight: 72.64 kg

DRUGS (5)
  1. HUMIRA [Suspect]
     Indication: CROHN'S DISEASE
     Route: 050
     Dates: start: 20071001
  2. HUMIRA [Suspect]
     Dosage: 20MG X TWO DOSES
  3. MYCOPHENOLATE MOFETIL [Concomitant]
     Indication: PYODERMA GANGRENOSUM
     Route: 048
     Dates: start: 20060601
  4. PREDNISONE TAB [Concomitant]
     Indication: CROHN'S DISEASE
     Route: 048
     Dates: start: 20080101
  5. PREDNISONE TAB [Concomitant]
     Route: 048

REACTIONS (4)
  - FAECALOMA [None]
  - GASTROINTESTINAL HYPOMOTILITY [None]
  - MOBILITY DECREASED [None]
  - MYALGIA [None]
